FAERS Safety Report 7734571-4 (Version None)
Quarter: 2011Q3

REPORT INFORMATION
  Report Type: 
  Country: None (occurrence: None)
  Receive Date: 20110907
  Receipt Date: 20110822
  Transmission Date: 20111222
  Serious: Yes (Death)
  Sender: FDA-Public Use
  Company Number: DE-GLAXOSMITHKLINE-D0072064A

PATIENT
  Sex: Female

DRUGS (2)
  1. EMBOLEX [Suspect]
     Route: 065
  2. MULTIPLE MEDICATION [Suspect]
     Route: 065

REACTIONS (2)
  - DEATH [None]
  - THROMBOCYTOSIS [None]
